FAERS Safety Report 7730808-6 (Version None)
Quarter: 2011Q3

REPORT INFORMATION
  Report Type: 
  Country: None (occurrence: None)
  Receive Date: 20110901
  Receipt Date: 20110901
  Transmission Date: 20111222
  Serious: Yes (Other)
  Sender: FDA-Public Use
  Company Number: None

PATIENT
  Sex: Female
  Weight: 79.6 kg

DRUGS (2)
  1. APIDRA SOLOSTAR [Suspect]
     Indication: TYPE 1 DIABETES MELLITUS
     Dosage: 2-12 UNITS WITH MEALS SUB CUTANEOUS
     Route: 058
     Dates: start: 20110826, end: 20110827
  2. LANTUS [Concomitant]

REACTIONS (2)
  - RASH MACULO-PAPULAR [None]
  - INJECTION SITE RASH [None]
